FAERS Safety Report 6985809-2 (Version None)
Quarter: 2010Q3

REPORT INFORMATION
  Report Type: 
  Country: None (occurrence: None)
  Receive Date: 20100915
  Receipt Date: 20100902
  Transmission Date: 20110219
  Serious: Yes (Other)
  Sender: FDA-Public Use
  Company Number: PHHY2010US56838

PATIENT
  Sex: Female
  Weight: 59.864 kg

DRUGS (6)
  1. RECLAST [Suspect]
     Indication: OSTEOPOROSIS
     Dosage: 5 MG
     Route: 042
     Dates: start: 20100812
  2. GABAPENTIN [Concomitant]
     Dosage: 300 MG
     Route: 048
  3. MULTI-VITAMINS [Concomitant]
     Route: 048
  4. VITAMIN D [Concomitant]
     Indication: OSTEOPOROSIS
     Dosage: UNK
     Route: 048
  5. VITAMIN E [Concomitant]
     Dosage: QD
     Route: 048
  6. ASPIRIN [Concomitant]
     Dosage: QD
     Route: 048

REACTIONS (4)
  - FEELING ABNORMAL [None]
  - HYPERTENSION [None]
  - PAIN IN JAW [None]
  - PARAESTHESIA ORAL [None]
